FAERS Safety Report 20303831 (Version 1)
Quarter: 2022Q1

REPORT INFORMATION
  Report Type: Report from Study
  Country: CO (occurrence: CO)
  Receive Date: 20220106
  Receipt Date: 20220106
  Transmission Date: 20220423
  Serious: Yes (Other)
  Sender: FDA-Public Use
  Company Number: CO-ABBVIE-22K-036-4221132-00

PATIENT
  Sex: Female
  Weight: 56 kg

DRUGS (1)
  1. HUMIRA [Suspect]
     Active Substance: ADALIMUMAB
     Indication: Rheumatoid arthritis
     Route: 058
     Dates: start: 20190518, end: 20211123

REACTIONS (1)
  - Inguinal hernia [Recovering/Resolving]

NARRATIVE: CASE EVENT DATE: 20200101
